FAERS Safety Report 8455388-1 (Version None)
Quarter: 2012Q2

REPORT INFORMATION
  Report Type: 
  Country: None (occurrence: None)
  Receive Date: 20120621
  Receipt Date: 20120607
  Transmission Date: 20120825
  Serious: Yes (Other)
  Sender: FDA-Public Use
  Company Number: AU-MYLANLABS-2012S1011828

PATIENT
  Sex: Female

DRUGS (1)
  1. LEVETIRACETAM [Suspect]
     Indication: EPILEPSY
     Dates: start: 20120528, end: 20120604

REACTIONS (2)
  - PETIT MAL EPILEPSY [None]
  - PRODUCT SUBSTITUTION ISSUE [None]
